FAERS Safety Report 15451178 (Version 2)
Quarter: 2018Q4

REPORT INFORMATION
  Report Type: Report from Study
  Country: AR (occurrence: AR)
  Receive Date: 20181001
  Receipt Date: 20181015
  Transmission Date: 20190204
  Serious: Yes (Hospitalization, Other)
  Sender: FDA-Public Use
  Company Number: PHHY2018AR104369

PATIENT
  Age: 72 Year
  Sex: Male

DRUGS (6)
  1. LASIX [Concomitant]
     Active Substance: FUROSEMIDE
     Indication: PRODUCT USED FOR UNKNOWN INDICATION
     Route: 065
  2. ENTRESTO [Suspect]
     Active Substance: SACUBITRIL\VALSARTAN
     Dosage: 50 MG, QD
     Route: 048
     Dates: start: 2017
  3. ENTRESTO [Suspect]
     Active Substance: SACUBITRIL\VALSARTAN
     Indication: CARDIAC FAILURE
     Dosage: 50 MG (SACUBITRIL 24 MG/ VALSARTAN 26 MG), QD
     Route: 065
     Dates: start: 201610, end: 201703
  4. ISORDIL [Concomitant]
     Active Substance: ISOSORBIDE DINITRATE
     Indication: PRODUCT USED FOR UNKNOWN INDICATION
     Route: 065
  5. APLACASSE [Suspect]
     Active Substance: LORAZEPAM
     Indication: PRODUCT USED FOR UNKNOWN INDICATION
     Route: 065
  6. ESCITALOPRAM [Concomitant]
     Active Substance: ESCITALOPRAM OXALATE
     Indication: PRODUCT USED FOR UNKNOWN INDICATION
     Route: 065

REACTIONS (13)
  - Drug dependence [Unknown]
  - Ill-defined disorder [Recovering/Resolving]
  - Blood pressure increased [Recovering/Resolving]
  - Heart rate increased [Recovering/Resolving]
  - Inappropriate schedule of product administration [Not Recovered/Not Resolved]
  - Coordination abnormal [Recovering/Resolving]
  - Pneumonia [Recovering/Resolving]
  - Prescribed underdose [Not Recovered/Not Resolved]
  - Depression [Recovering/Resolving]
  - Blood pressure decreased [Recovering/Resolving]
  - Cardiac disorder [Recovering/Resolving]
  - Chest pain [Recovering/Resolving]
  - Nervous system disorder [Recovering/Resolving]

NARRATIVE: CASE EVENT DATE: 201610
